FAERS Safety Report 13442233 (Version 1)
Quarter: 2017Q2

REPORT INFORMATION
  Report Type: Spontaneous
  Country: US (occurrence: US)
  Receive Date: 20170413
  Receipt Date: 20170413
  Transmission Date: 20170830
  Serious: No
  Sender: FDA-Public Use
  Company Number: None

PATIENT
  Age: 35 Year
  Sex: Female
  Weight: 63 kg

DRUGS (2)
  1. METFORMIN 1000 XR ESTELLE (CYPROTERONE COMPOUND) [Concomitant]
  2. NOVOMIX 30 FLEXPEN [Suspect]
     Active Substance: INSULIN ASPART
     Indication: DIABETES MELLITUS
     Route: 058

REACTIONS (3)
  - Injection site pain [None]
  - Feeling abnormal [None]
  - Hypertriglyceridaemia [None]

NARRATIVE: CASE EVENT DATE: 20150701
